FAERS Safety Report 17327454 (Version 19)
Quarter: 2023Q1

REPORT INFORMATION
  Report Type: Report from Study
  Country: CO (occurrence: CO)
  Receive Date: 20200127
  Receipt Date: 20230214
  Transmission Date: 20230418
  Serious: Yes (Other)
  Sender: FDA-Public Use
  Company Number: PHHY2019CO160385

PATIENT
  Age: 49 Year
  Sex: Female

DRUGS (10)
  1. KISQALI [Suspect]
     Active Substance: RIBOCICLIB
     Indication: Breast cancer metastatic
     Dosage: 600 MG, QD
     Route: 048
     Dates: start: 20190424
  2. KISQALI [Suspect]
     Active Substance: RIBOCICLIB
     Dosage: 200 MG, QD
     Route: 048
  3. KISQALI [Suspect]
     Active Substance: RIBOCICLIB
     Dosage: 600 MG, QD (MORE THAN TWO YEARS AGO BUT DOES NOT REMEMBER EXACTLY HOW LONG AGO)
     Route: 048
  4. KISQALI [Suspect]
     Active Substance: RIBOCICLIB
     Dosage: 600 MG, QD
     Route: 048
     Dates: start: 20211122
  5. KISQALI [Suspect]
     Active Substance: RIBOCICLIB
     Dosage: 600 MG, QD
     Route: 048
  6. KISQALI [Suspect]
     Active Substance: RIBOCICLIB
     Dosage: UNK, QD
     Route: 048
  7. FEMARA [Suspect]
     Active Substance: LETROZOLE
     Indication: Breast cancer
     Dosage: 2.5 MG, QD
     Route: 048
     Dates: start: 20190424
  8. FEMARA [Suspect]
     Active Substance: LETROZOLE
     Dosage: 2.5 MG, QD
     Route: 048
     Dates: start: 20211122
  9. FEMARA [Suspect]
     Active Substance: LETROZOLE
     Dosage: 2.5 MG, QD
     Route: 048
  10. FEMARA [Suspect]
     Active Substance: LETROZOLE
     Dosage: UNK, QD
     Route: 048

REACTIONS (40)
  - General physical health deterioration [Unknown]
  - Lip and/or oral cavity cancer [Unknown]
  - Breast cancer metastatic [Unknown]
  - Malignant neoplasm progression [Unknown]
  - Bone pain [Recovered/Resolved]
  - Spinal pain [Unknown]
  - Swelling face [Unknown]
  - Pain in jaw [Unknown]
  - Musculoskeletal chest pain [Unknown]
  - Arthralgia [Unknown]
  - Memory impairment [Unknown]
  - Osteitis [Unknown]
  - Oral mucosal exfoliation [Unknown]
  - Weight decreased [Unknown]
  - Feeding disorder [Unknown]
  - Aphasia [Unknown]
  - Pain [Unknown]
  - Abscess oral [Unknown]
  - Tooth loss [Unknown]
  - Jaw disorder [Unknown]
  - Oral pain [Unknown]
  - Facial pain [Unknown]
  - Feeling abnormal [Unknown]
  - Malaise [Unknown]
  - Depressed mood [Unknown]
  - Dysstasia [Unknown]
  - Bone disorder [Recovered/Resolved]
  - Pain in extremity [Unknown]
  - Crying [Recovered/Resolved]
  - Visual impairment [Unknown]
  - Pulmonary pain [Not Recovered/Not Resolved]
  - Pulmonary mass [Unknown]
  - Nervous system disorder [Unknown]
  - Tremor [Unknown]
  - Gait inability [Unknown]
  - Headache [Unknown]
  - Pyrexia [Unknown]
  - Stomatitis [Unknown]
  - Back pain [Unknown]
  - Abdominal pain upper [Recovered/Resolved]

NARRATIVE: CASE EVENT DATE: 20200116
